FAERS Safety Report 6897625-0 (Version None)
Quarter: 2010Q3

REPORT INFORMATION
  Report Type: 
  Country: None (occurrence: None)
  Receive Date: 20100802
  Receipt Date: 20070622
  Transmission Date: 20110219
  Serious: No
  Sender: FDA-Public Use
  Company Number: US-PFIZER INC-2007052243

PATIENT
  Sex: Female
  Weight: 100 kg

DRUGS (10)
  1. LYRICA [Suspect]
     Indication: NEUROPATHY PERIPHERAL
     Dosage: 25MG BID
     Dates: start: 20070601
  2. FUROSEMIDE [Concomitant]
  3. CYMBALTA [Concomitant]
  4. LOTREL [Concomitant]
  5. TRAMADOL HYDROCHLORIDE [Concomitant]
  6. ACETYLSALICYLIC ACID SRT [Concomitant]
  7. POTASSIUM [Concomitant]
  8. ZOCOR [Concomitant]
  9. METOPROLOL [Concomitant]
  10. SPIRIVA [Concomitant]

REACTIONS (4)
  - DRY MOUTH [None]
  - NODULE ON EXTREMITY [None]
  - OEDEMA PERIPHERAL [None]
  - PAIN IN EXTREMITY [None]
